FAERS Safety Report 9663781 (Version 2)
Quarter: 2013Q4

REPORT INFORMATION
  Report Type: Report from Study
  Country: US (occurrence: US)
  Receive Date: 20131101
  Receipt Date: 20131121
  Transmission Date: 20140711
  Serious: Yes (Death, Other)
  Sender: FDA-Public Use
  Company Number: GXBR2013US001893

PATIENT
  Age: 62 Year
  Sex: Male
  Weight: 67.57 kg

DRUGS (11)
  1. ENOXAPARIN SODIUM [Suspect]
     Indication: RENAL VEIN THROMBOSIS
     Dosage: 70 MG, Q12H
     Route: 058
     Dates: start: 20130723, end: 20131001
  2. NORVASC [Concomitant]
     Indication: HYPERTENSION
     Dosage: 5 MG, QD
  3. ASPIRIN [Concomitant]
     Dosage: 81 MG, QD
  4. LOMOTIL//LOPERAMIDE HYDROCHLORIDE [Concomitant]
     Indication: DIARRHOEA
     Dosage: UNK MG, PRN
  5. NASONEX [Concomitant]
     Dosage: 2 SPRAYS, QD
  6. PRILOSEC [Concomitant]
     Dosage: 20 MG, QD
  7. CREON [Concomitant]
     Indication: PANCREATIC INSUFFICIENCY
     Dosage: 6 DF BEFORE MEALS, 3 DF BEFORE SNACKS
  8. OXYCODONE [Concomitant]
     Indication: PAIN
     Dosage: 5 MG, Q4H
  9. ZOFRAN [Concomitant]
     Indication: NAUSEA
     Dosage: 8 MG, Q8H PRN
  10. MARINOL [Concomitant]
     Indication: DECREASED APPETITE
     Dosage: 5 MG, BID
  11. ALBUTEROL [Concomitant]
     Dosage: 2 PUFFS, Q4H PRN

REACTIONS (2)
  - Upper gastrointestinal haemorrhage [Fatal]
  - Anaemia [Unknown]
